FAERS Safety Report 12200884 (Version 1)
Quarter: 2016Q1

REPORT INFORMATION
  Report Type: Spontaneous
  Country: US (occurrence: US)
  Receive Date: 20160322
  Receipt Date: 20160322
  Transmission Date: 20160526
  Serious: No
  Sender: FDA-Public Use
  Company Number: US-PFIZER INC-2016167102

PATIENT
  Sex: Female

DRUGS (18)
  1. FUROSEMIDE. [Suspect]
     Active Substance: FUROSEMIDE
     Dosage: 20 MG, 1X/DAY
     Route: 048
     Dates: start: 201602
  2. LACTULOSE. [Suspect]
     Active Substance: LACTULOSE
     Dosage: 20ML LIQUID TWICE A DAY BY MOUTH
     Route: 048
     Dates: start: 201602
  3. OMEPRAZOLE. [Concomitant]
     Active Substance: OMEPRAZOLE
     Indication: GASTROOESOPHAGEAL REFLUX DISEASE
  4. DICYCLOMINE [Suspect]
     Active Substance: DICYCLOMINE HYDROCHLORIDE
     Dosage: 20MG BY MOUTH TWICE A DAY
     Route: 048
     Dates: start: 201602
  5. LYRICA [Suspect]
     Active Substance: PREGABALIN
     Dosage: 100MG CAPSULE EVERY 6-8 HOURS FOR A TOTAL OF 3 TIMES A DAY
     Dates: start: 20160219
  6. SPIRONOLACTONE. [Suspect]
     Active Substance: SPIRONOLACTONE
     Indication: FLUID RETENTION
     Dosage: 25MG TABLET BY MOUTH THREE TIMES A DAY
     Route: 048
  7. SERTRALINE HCL [Suspect]
     Active Substance: SERTRALINE HYDROCHLORIDE
     Dosage: 100MG TABLET BY MOUTH ONCE A DAY
     Route: 048
     Dates: start: 20160216
  8. LYRICA [Suspect]
     Active Substance: PREGABALIN
     Indication: FIBROMYALGIA
     Dosage: 100MG ONCE A DAY
  9. FUROSEMIDE. [Suspect]
     Active Substance: FUROSEMIDE
     Indication: FLUID RETENTION
     Dosage: 20MG 1 TABLET BY MOUTH ONCE DAY
     Route: 048
  10. BENADRYL OTC [Concomitant]
     Indication: SLEEP DISORDER
     Dosage: 25MG 2 TABLETS BY MOUTH AT BEDTIME
     Route: 048
  11. LYRICA [Suspect]
     Active Substance: PREGABALIN
     Indication: NEUROPATHY PERIPHERAL
     Dosage: 100MG TWICE A DAY
  12. DICYCLOMINE [Suspect]
     Active Substance: DICYCLOMINE HYDROCHLORIDE
     Indication: ABDOMINAL PAIN UPPER
     Dosage: 20MG EVERY 6 HOURS
     Route: 048
  13. SPIRONOLACTONE. [Suspect]
     Active Substance: SPIRONOLACTONE
     Dosage: THEN REDUCED TO ONCE A DAY
     Route: 048
  14. OMEPRAZOLE. [Concomitant]
     Active Substance: OMEPRAZOLE
     Indication: DYSPEPSIA
     Dosage: 20MG TABLET ONCE A DAY BY MOUTH
     Route: 048
  15. SERTRALINE HCL [Suspect]
     Active Substance: SERTRALINE HYDROCHLORIDE
     Dosage: 50MG A DAY
  16. XIFAXAN [Concomitant]
     Active Substance: RIFAXIMIN
     Indication: INFECTION
     Dosage: 550MG ONE TABLET BY MOUTH TWICE A DAY
     Route: 048
  17. SPIRONOLACTONE. [Suspect]
     Active Substance: SPIRONOLACTONE
     Dosage: 25MG TABLET BY MOUTH 2-3 TIMES A DAY DEPENDING ON WATER LEVEL
     Route: 048
     Dates: start: 201602
  18. LACTULOSE. [Suspect]
     Active Substance: LACTULOSE
     Indication: AMMONIA INCREASED
     Dosage: 15-20ML A DAY

REACTIONS (6)
  - Pain [Unknown]
  - Insomnia [Unknown]
  - Feeling abnormal [Unknown]
  - Impaired work ability [Unknown]
  - Drug ineffective [Unknown]
  - Cognitive disorder [Unknown]
